FAERS Safety Report 5594847-6 (Version None)
Quarter: 2007Q4

REPORT INFORMATION
  Report Type: 
  Country: None (occurrence: None)
  Receive Date: 20071218
  Receipt Date: 20070503
  Transmission Date: 20080405
  Serious: Yes (Hospitalization, Other)
  Sender: FDA-Public Use
  Company Number: 2006119524

PATIENT
  Sex: Male

DRUGS (2)
  1. BEXTRA [Suspect]
     Indication: ARTHRALGIA
     Dosage: 10 MG (10 MG,1 IN 1 D),ORAL
     Route: 048
     Dates: start: 20030101
  2. VIOXX [Suspect]
     Dosage: ORAL
     Route: 048
     Dates: start: 20010601, end: 20030301

REACTIONS (1)
  - CARDIAC FAILURE CONGESTIVE [None]
